FAERS Safety Report 4482204-5 (Version None)
Quarter: 2004Q4

REPORT INFORMATION
  Report Type: 
  Country: None (occurrence: None)
  Receive Date: 20041019
  Receipt Date: 20041008
  Transmission Date: 20050328
  Serious: Yes (Disabling)
  Sender: FDA-Public Use
  Company Number: 200414838BCC

PATIENT
  Age: 29 Year
  Sex: Male

DRUGS (1)
  1. ASPIRIN [Suspect]
     Indication: TOOTHACHE
     Dosage: 500 MG, Q1HR, ORAL
     Route: 048
     Dates: start: 20041007

REACTIONS (2)
  - DEAFNESS [None]
  - MEDICATION ERROR [None]
